FAERS Safety Report 12360423 (Version 1)
Quarter: 2016Q2

REPORT INFORMATION
  Report Type: Spontaneous
  Country: US (occurrence: US)
  Receive Date: 20160512
  Receipt Date: 20160512
  Transmission Date: 20160815
  Serious: Yes (Death, Hospitalization)
  Sender: FDA-Public Use
  Company Number: US-JNJFOC-20160505372

PATIENT
  Age: 29 Year
  Sex: Female
  Weight: 115 kg

DRUGS (1)
  1. YONDELIS [Suspect]
     Active Substance: TRABECTEDIN
     Indication: LIPOSARCOMA
     Route: 042
     Dates: start: 20160310, end: 20160407

REACTIONS (5)
  - Disseminated intravascular coagulation [Unknown]
  - Rhabdomyolysis [Fatal]
  - Pyrexia [Unknown]
  - Neutropenia [Unknown]
  - Hepatic failure [Unknown]

NARRATIVE: CASE EVENT DATE: 20160414
